FAERS Safety Report 16222791 (Version 1)
Quarter: 2019Q2

REPORT INFORMATION
  Report Type: Spontaneous
  Country: US (occurrence: US)
  Receive Date: 20190422
  Receipt Date: 20190422
  Transmission Date: 20190711
  Serious: No
  Sender: FDA-Public Use
  Company Number: US-009507513-1904USA005228

PATIENT
  Age: 76 Year
  Sex: Male

DRUGS (2)
  1. KEYTRUDA [Suspect]
     Active Substance: PEMBROLIZUMAB
     Indication: MALIGNANT NEOPLASM OF CONJUNCTIVA
     Dosage: 2 MILLIGRAM/KILOGRAM, EVERY 3 WEEKS
     Dates: start: 201508, end: 201702
  2. INTERFERON ALFA NOS [Concomitant]
     Active Substance: INTERFERON ALFA-2A OR INTERFERON ALFA-2B
     Indication: MALIGNANT NEOPLASM OF CONJUNCTIVA
     Dosage: 1 MILLION UNITS / CC, 4 TIMES DAILY
     Route: 047

REACTIONS (2)
  - Dermatitis [Unknown]
  - Therapeutic product effect incomplete [Recovered/Resolved]
